FAERS Safety Report 9473960 (Version 2)
Quarter: 2013Q3

REPORT INFORMATION
  Report Type: Spontaneous
  Country: US (occurrence: US)
  Receive Date: 20130823
  Receipt Date: 20130823
  Transmission Date: 20140515
  Serious: Yes (Other)
  Sender: FDA-Public Use
  Company Number: US-BRISTOL-MYERS SQUIBB COMPANY-17201237

PATIENT
  Age: 65 Year
  Sex: Female

DRUGS (1)
  1. SPRYCEL [Suspect]
     Dosage: TABS

REACTIONS (4)
  - Malignant neoplasm progression [Unknown]
  - Asthenia [Unknown]
  - Weight increased [Unknown]
  - Feeling abnormal [Unknown]
